FAERS Safety Report 5990123-8 (Version None)
Quarter: 2008Q4

REPORT INFORMATION
  Report Type: 
  Country: None (occurrence: None)
  Receive Date: 20081209
  Receipt Date: 20081202
  Transmission Date: 20090506
  Serious: No
  Sender: FDA-Public Use
  Company Number: 2008S1021542

PATIENT
  Age: 14 Year
  Sex: Female

DRUGS (1)
  1. AMNESTEEM [Suspect]
     Indication: ACNE
     Dosage: 40 MG; DAILY; ORAL
     Route: 048
     Dates: start: 20081114

REACTIONS (4)
  - FATIGUE [None]
  - INFECTIOUS MONONUCLEOSIS [None]
  - LIVER FUNCTION TEST ABNORMAL [None]
  - OROPHARYNGEAL PAIN [None]
